FAERS Safety Report 9065451 (Version 2)
Quarter: 2013Q1

REPORT INFORMATION
  Report Type: Spontaneous
  Country: DE (occurrence: DE)
  Receive Date: 20130214
  Receipt Date: 20130225
  Transmission Date: 20140127
  Serious: Yes (Other)
  Sender: FDA-Public Use
  Company Number: DE-JNJFOC-20130201180

PATIENT
  Age: 31 Year
  Sex: Female
  Weight: 90 kg

DRUGS (15)
  1. REMICADE [Suspect]
     Indication: CROHN^S DISEASE
     Dosage: DRUG HAD GIVEN 2.3 -34.4 GESTATIONAL WEEK OF PREGNANCY
     Route: 042
     Dates: start: 20120214
  2. REMICADE [Suspect]
     Indication: CROHN^S DISEASE
     Route: 042
     Dates: start: 20120605
  3. REMICADE [Suspect]
     Indication: CROHN^S DISEASE
     Route: 042
     Dates: start: 20120412
  4. REMICADE [Suspect]
     Indication: CROHN^S DISEASE
     Route: 042
     Dates: start: 20120731
  5. REMICADE [Suspect]
     Indication: CROHN^S DISEASE
     Route: 042
     Dates: start: 20120926, end: 20120926
  6. AZATHIOPRINE [Suspect]
     Indication: CROHN^S DISEASE
     Dosage: 150 MG IS DIVIDED INTO 3 DOSAGES OF 50 MG.??DRUG HAD GIVEN FROM 0-40.3 GESTATIONAL WEEK
     Route: 048
     Dates: start: 20120128, end: 20121106
  7. INSULIN [Suspect]
     Indication: GESTATIONAL DIABETES
     Route: 065
  8. ACICLOVIR [Suspect]
     Indication: ORAL HERPES
     Dosage: 1200 MG HAD GIVEN IN 3 DOSES OF 400 MG.??DRUG HAD GIVEN FROM 1.6 TO 2.4 GESTATIONAL WEEK
     Route: 048
     Dates: start: 20120210, end: 20120215
  9. CEFUROXIM [Suspect]
     Indication: GENITAL ABSCESS
     Dosage: 2X500 MG??DRUG HAD GIVEN 38.6-40.3 GESTATIONAL WEEK
     Route: 048
     Dates: start: 20121026, end: 20121106
  10. VITAMIN B [Concomitant]
     Indication: CROHN^S DISEASE
     Route: 042
     Dates: start: 20120731
  11. VITAMIN B [Concomitant]
     Indication: CROHN^S DISEASE
     Route: 042
     Dates: start: 20120605
  12. VITAMIN B [Concomitant]
     Indication: CROHN^S DISEASE
     Route: 042
     Dates: start: 20120412
  13. VITAMIN B [Concomitant]
     Indication: CROHN^S DISEASE
     Dosage: DRUG HAD GIVEN FROM 2.3-3.4 GESTATIONAL WEEK
     Route: 042
     Dates: start: 20120214
  14. VITAMIN B [Concomitant]
     Indication: CROHN^S DISEASE
     Route: 042
     Dates: start: 20120926, end: 20120926
  15. FOLIO FORTE [Concomitant]
     Indication: PROPHYLAXIS OF NEURAL TUBE DEFECT
     Dosage: DRUG HAD GIVEN FROM 0-40.3 GESTATIONAL WEEK
     Route: 048
     Dates: start: 20120128, end: 20121106

REACTIONS (3)
  - Exposure during pregnancy [Recovered/Resolved]
  - Obstructed labour [Recovered/Resolved]
  - Gestational diabetes [Unknown]
